FAERS Safety Report 8048623-5 (Version None)
Quarter: 2011Q4

REPORT INFORMATION
  Report Type: 
  Country: None (occurrence: None)
  Receive Date: 20111209
  Receipt Date: 20111012
  Transmission Date: 20120403
  Serious: No
  Sender: FDA-Public Use
  Company Number: 2011SP048297

PATIENT
  Age: 48 Year
  Sex: Male

DRUGS (10)
  1. BOCEPREVIR 200 MG [Suspect]
     Indication: HEPATITIS C
     Dosage: 800 MG;Q8H;PO
     Route: 048
     Dates: start: 20110910
  2. RIBAVIRIN [Suspect]
     Indication: PRODUCT USED FOR UNKNOWN INDICATION
     Dosage: ;BID;PO
     Route: 048
  3. FOLIC ACID [Concomitant]
  4. INTERFERON [Suspect]
     Indication: PRODUCT USED FOR UNKNOWN INDICATION
     Dosage: 180 MCG
  5. OXYCODONE HCL [Concomitant]
  6. EPIPEN [Concomitant]
  7. TERBINAFINE HCL [Concomitant]
  8. UREA [Concomitant]
  9. ACETAMINOPHEN [Concomitant]
  10. CETIRIZINE [Concomitant]

REACTIONS (2)
  - MIGRAINE [None]
  - TENSION [None]
